FAERS Safety Report 12765164 (Version 1)
Quarter: 2016Q3

REPORT INFORMATION
  Report Type: Spontaneous
  Country: LV (occurrence: LV)
  Receive Date: 20160921
  Receipt Date: 20160921
  Transmission Date: 20161109
  Serious: Yes (Life-Threatening)
  Sender: FDA-Public Use
  Company Number: LV-TEVA-691785ACC

PATIENT
  Age: 17 Year
  Sex: Male

DRUGS (1)
  1. ETOPOSIDE-TEVA 20 MG/ML CONCENTRATE FOR SOLUTION FOR INFUSION [Suspect]
     Active Substance: ETOPOSIDE
     Indication: HODGKIN^S DISEASE NODULAR SCLEROSIS STAGE II
     Route: 042
     Dates: start: 20160814, end: 20160818

REACTIONS (4)
  - Abdominal pain upper [Recovered/Resolved]
  - Peripheral circulatory failure [Recovered/Resolved]
  - Cyanosis [Recovered/Resolved]
  - Loss of consciousness [Recovered/Resolved]

NARRATIVE: CASE EVENT DATE: 20160818
